FAERS Safety Report 18082893 (Version 1)
Quarter: 2020Q3

REPORT INFORMATION
  Report Type: Spontaneous
  Country: US (occurrence: US)
  Receive Date: 20200729
  Receipt Date: 20200729
  Transmission Date: 20201103
  Serious: No
  Sender: FDA-Public Use
  Company Number: US-SHIRE-US202024283

PATIENT
  Sex: Male

DRUGS (1)
  1. GATTEX [Suspect]
     Active Substance: TEDUGLUTIDE\WATER
     Indication: PRODUCT USED FOR UNKNOWN INDICATION
     Dosage: 0.5000 (UNIT UNKNOWN) UNK
     Route: 058
     Dates: start: 20180425

REACTIONS (3)
  - Weight decreased [Recovering/Resolving]
  - Gastrointestinal stoma output increased [Recovering/Resolving]
  - Blood sodium decreased [Recovering/Resolving]
